FAERS Safety Report 5856865-X (Version None)
Quarter: 2008Q3

REPORT INFORMATION
  Report Type: 
  Country: None (occurrence: None)
  Receive Date: 20080825
  Receipt Date: 20080815
  Transmission Date: 20090109
  Serious: Yes (Other)
  Sender: FDA-Public Use
  Company Number: US-WYE-H01598307

PATIENT
  Sex: Female
  Weight: 59.02 kg

DRUGS (3)
  1. PROTONIX [Suspect]
     Indication: HIATUS HERNIA
     Route: 048
     Dates: start: 20060101, end: 20070926
  2. PROTONIX [Suspect]
     Indication: GASTROOESOPHAGEAL REFLUX DISEASE
     Route: 048
     Dates: start: 20070927, end: 20071016
  3. PROTONIX [Suspect]
     Route: 048
     Dates: start: 20071017, end: 20071130

REACTIONS (4)
  - CARBOHYDRATE ANTIGEN 19-9 INCREASED [None]
  - DECREASED APPETITE [None]
  - LABORATORY TEST INTERFERENCE [None]
  - WEIGHT DECREASED [None]
